FAERS Safety Report 7633542-6 (Version None)
Quarter: 2011Q3

REPORT INFORMATION
  Report Type: 
  Country: None (occurrence: None)
  Receive Date: 20110725
  Receipt Date: 20110720
  Transmission Date: 20111222
  Serious: Yes (Other)
  Sender: FDA-Public Use
  Company Number: US-PFIZER INC-2011152925

PATIENT
  Sex: Female
  Weight: 55.3 kg

DRUGS (10)
  1. CHANTIX [Suspect]
     Dosage: 1 MG, UNK
     Dates: start: 20110101, end: 20110101
  2. VITAMIN B-12 [Concomitant]
     Dosage: UNK, WEEKLY
  3. CHANTIX [Suspect]
     Indication: SMOKING CESSATION THERAPY
     Dosage: 0.5 MG, 1X/DAY
     Dates: start: 20110610, end: 20110101
  4. CHANTIX [Suspect]
     Dosage: 0.5 MG, 1X/DAY
     Dates: start: 20110710
  5. XANAX [Concomitant]
     Indication: RELAXATION THERAPY
     Dosage: UNK
  6. RESTORIL [Concomitant]
     Indication: SLEEP DISORDER
     Dosage: UNK
  7. FLAXSEED OIL [Concomitant]
     Dosage: UNK
  8. ESTRATEST [Concomitant]
     Dosage: UNK
  9. FOLIC ACID [Concomitant]
     Dosage: UNK
  10. CHANTIX [Suspect]
     Dosage: 1 MG, 2X/DAY
     Route: 048
     Dates: start: 20110101, end: 20110701

REACTIONS (13)
  - DEPRESSED MOOD [None]
  - AGITATION [None]
  - URINARY RETENTION [None]
  - VOMITING [None]
  - MALAISE [None]
  - WEIGHT INCREASED [None]
  - ABNORMAL DREAMS [None]
  - NERVOUSNESS [None]
  - HEADACHE [None]
  - ABDOMINAL DISTENSION [None]
  - CHRONIC OBSTRUCTIVE PULMONARY DISEASE [None]
  - EMPHYSEMA [None]
  - SOMNOLENCE [None]
